FAERS Safety Report 25785939 (Version 1)
Quarter: 2025Q3

REPORT INFORMATION
  Report Type: Spontaneous
  Country: US (occurrence: None)
  Receive Date: 20250909
  Receipt Date: 20250909
  Transmission Date: 20251020
  Serious: Yes (Death)
  Sender: FDA-CTU
  Company Number: None

PATIENT
  Age: 73 Year
  Sex: Male

DRUGS (6)
  1. OFEV [Suspect]
     Active Substance: NINTEDANIB
     Indication: Interstitial lung disease
     Dosage: 150MG BID ORAL ?
     Route: 048
     Dates: start: 20191025, end: 20250705
  2. OMEPRAZOLE [Concomitant]
     Active Substance: OMEPRAZOLE
  3. SILDENAFIL [Concomitant]
     Active Substance: SILDENAFIL
  4. VITAMIN D3 [Concomitant]
     Active Substance: CHOLECALCIFEROL
  5. WIXELA INHUB [Concomitant]
     Active Substance: FLUTICASONE PROPIONATE\SALMETEROL XINAFOATE
  6. FLONASE [Concomitant]
     Active Substance: FLUTICASONE PROPIONATE

REACTIONS (2)
  - Unresponsive to stimuli [None]
  - Intraventricular haemorrhage [None]

NARRATIVE: CASE EVENT DATE: 20250705
